FAERS Safety Report 9325273 (Version 4)
Quarter: 2013Q3

REPORT INFORMATION
  Report Type: Report from Study
  Country: CN (occurrence: CN)
  Receive Date: 20130604
  Receipt Date: 20130819
  Transmission Date: 20140515
  Serious: Yes (Hospitalization)
  Sender: FDA-Public Use
  Company Number: CN-AMGEN-CHNCT2013038810

PATIENT
  Age: 57 Year
  Sex: Female
  Weight: 48 kg

DRUGS (7)
  1. PANITUMUMAB [Suspect]
     Indication: COLORECTAL CANCER METASTATIC
     Dosage: 258 MG, UNK
     Route: 065
     Dates: start: 20130507, end: 20130521
  2. THYMALFASIN [Concomitant]
     Indication: PROPHYLAXIS
     Dosage: UNK
     Route: 050
     Dates: start: 20130503, end: 20130503
  3. METRONIDAZOLE [Concomitant]
     Indication: CHOLECYSTITIS ACUTE
     Dosage: UNK
     Route: 042
     Dates: start: 20130503, end: 20130506
  4. SODIUM CHLORIDE [Concomitant]
     Indication: CHOLECYSTITIS
     Dosage: UNK
     Route: 042
     Dates: start: 20130503, end: 20130506
  5. LEVOFLOXACIN LACTATE [Concomitant]
     Indication: CHOLECYSTITIS ACUTE
     Dosage: UNK
     Route: 042
     Dates: start: 20130503, end: 20130506
  6. PARACETAMOL + CAFFEINE [Concomitant]
     Indication: CHOLECYSTITIS ACUTE
     Dosage: UNK
     Route: 048
     Dates: start: 20130505, end: 20130509
  7. LACTULOSE [Concomitant]
     Indication: CONSTIPATION
     Dosage: UNK
     Route: 048
     Dates: start: 20130510, end: 20130705

REACTIONS (1)
  - Ileus [Not Recovered/Not Resolved]
